FAERS Safety Report 6125505-7 (Version None)
Quarter: 2009Q1

REPORT INFORMATION
  Report Type: 
  Country: None (occurrence: None)
  Receive Date: 20090320
  Receipt Date: 20090310
  Transmission Date: 20090719
  Serious: Yes (Hospitalization)
  Sender: FDA-Public Use
  Company Number: DE-WYE-H08549809

PATIENT
  Age: 72 Year
  Sex: Female
  Weight: 77 kg

DRUGS (7)
  1. PANTOZOL [Suspect]
     Indication: PROPHYLAXIS AGAINST GASTROINTESTINAL ULCER
     Route: 048
     Dates: start: 20070101
  2. BISOPROLOL [Concomitant]
     Indication: RENAL HYPERTENSION
     Route: 048
     Dates: start: 20000101
  3. TOREM [Concomitant]
     Indication: RENAL HYPERTENSION
     Route: 048
     Dates: start: 20050101
  4. FALITHROM [Concomitant]
     Indication: ATRIAL FIBRILLATION
     Dosage: 1 IN 1 DAY
     Route: 048
     Dates: start: 20050101
  5. SIMVASTATIN [Concomitant]
     Indication: HYPERLIPIDAEMIA
     Route: 048
     Dates: end: 20080808
  6. CLINDAMYCIN HCL [Suspect]
     Indication: ERYSIPELAS
     Route: 048
     Dates: start: 20080703, end: 20080721
  7. COAPROVEL [Concomitant]
     Indication: RENAL HYPERTENSION
     Route: 048
     Dates: start: 20050101

REACTIONS (1)
  - CLOSTRIDIUM DIFFICILE COLITIS [None]
